FAERS Safety Report 14012977 (Version 1)
Quarter: 2017Q3

REPORT INFORMATION
  Report Type: Report from Study
  Country: CA (occurrence: CA)
  Receive Date: 20170926
  Receipt Date: 20170926
  Transmission Date: 20171128
  Serious: Yes (Other)
  Sender: FDA-Public Use
  Company Number: CA-GLAXOSMITHKLINE-CA2017GSK145931

PATIENT
  Sex: Male

DRUGS (16)
  1. LEFLUNOMIDE. [Concomitant]
     Active Substance: LEFLUNOMIDE
  2. MOBICOX [Concomitant]
     Active Substance: MELOXICAM
  3. ASA [Concomitant]
     Active Substance: ASPIRIN
  4. PLAQUENIL [Concomitant]
     Active Substance: HYDROXYCHLOROQUINE SULFATE
  5. ATORVASTATIN CALCIUM. [Concomitant]
     Active Substance: ATORVASTATIN CALCIUM
  6. CICLOSPORIN [Suspect]
     Active Substance: CYCLOSPORINE
     Indication: PSORIATIC ARTHROPATHY
     Dosage: UNK
     Route: 065
     Dates: end: 201301
  7. SULFASALAZINE. [Concomitant]
     Active Substance: SULFASALAZINE
  8. CYCLOPHOSPHAMIDE. [Concomitant]
     Active Substance: CYCLOPHOSPHAMIDE
  9. VIOXX [Concomitant]
     Active Substance: ROFECOXIB
  10. INDOMETHACIN. [Concomitant]
     Active Substance: INDOMETHACIN
  11. MOBIFLEX [Concomitant]
  12. KETOPROFEN. [Concomitant]
     Active Substance: KETOPROFEN
  13. DICLOFENAC SODIUM. [Suspect]
     Active Substance: DICLOFENAC SODIUM
     Indication: PRODUCT USED FOR UNKNOWN INDICATION
     Dosage: UNK
     Route: 065
  14. METHOTREXATE. [Concomitant]
     Active Substance: METHOTREXATE
  15. OTEZLA [Concomitant]
     Active Substance: APREMILAST
  16. NAPROXEN. [Concomitant]
     Active Substance: NAPROXEN

REACTIONS (2)
  - Hepatitis B antibody positive [Unknown]
  - Hip fracture [Unknown]
